FAERS Safety Report 18289723 (Version 1)
Quarter: 2020Q3

REPORT INFORMATION
  Report Type: Spontaneous
  Country: US (occurrence: US)
  Receive Date: 20200921
  Receipt Date: 20200921
  Transmission Date: 20201103
  Serious: No
  Sender: FDA-Public Use
  Company Number: US-BRAINTREE LABORATORIES-200243

PATIENT
  Age: 55 Year
  Sex: Male
  Weight: 62.14 kg

DRUGS (1)
  1. SUPREP BOWEL PREP [Suspect]
     Active Substance: MAGNESIUM SULFATE\POTASSIUM SULFATE\SODIUM SULFATE
     Indication: OFF LABEL USE
     Route: 048
     Dates: start: 20200709, end: 20200709

REACTIONS (2)
  - Gastrointestinal sounds abnormal [None]
  - Chills [None]

NARRATIVE: CASE EVENT DATE: 20200709
